FAERS Safety Report 4621651-5 (Version None)
Quarter: 2005Q1

REPORT INFORMATION
  Report Type: 
  Country: None (occurrence: None)
  Receive Date: 20050328
  Receipt Date: 20030410
  Transmission Date: 20050727
  Serious: No
  Sender: FDA-Public Use
  Company Number: 5367

PATIENT
  Age: 63 Year
  Sex: Male

DRUGS (9)
  1. PAMIDRONATE DISODIUM [Suspect]
     Indication: MULTIPLE MYELOMA
     Dosage: 90 MG Q3W IV
     Route: 042
     Dates: start: 19970501, end: 19980201
  2. PAMIDRONATE DISODIUM [Suspect]
     Indication: MULTIPLE MYELOMA
     Dosage: 180 MG FORTNIGHTLY IV
     Route: 042
     Dates: start: 19980201
  3. CYCLOPHOSPHAMIDE [Concomitant]
  4. DEXAMETHASONE [Concomitant]
  5. ETOPOSIDE [Concomitant]
  6. CISPLATIN [Concomitant]
  7. VINCRISTINE [Concomitant]
  8. DOXORUBICIN HCL [Concomitant]
  9. THALIDOMIDE [Concomitant]

REACTIONS (6)
  - BLOOD ALBUMIN DECREASED [None]
  - BLOOD CREATININE INCREASED [None]
  - GLOMERULONEPHRITIS FOCAL [None]
  - HAEMODIALYSIS [None]
  - OEDEMA PERIPHERAL [None]
  - PROTEIN URINE PRESENT [None]
